FAERS Safety Report 23144079 (Version 1)
Quarter: 2023Q4

REPORT INFORMATION
  Report Type: Spontaneous
  Country: JP (occurrence: JP)
  Receive Date: 20231103
  Receipt Date: 20231103
  Transmission Date: 20240110
  Serious: No
  Sender: FDA-Public Use
  Company Number: JP-SCALL-2023-JP-117758

PATIENT
  Age: 75 Year
  Sex: Male

DRUGS (1)
  1. DUTASTERIDE [Suspect]
     Active Substance: DUTASTERIDE
     Dosage: 5 CAPSULES A WEEK

REACTIONS (11)
  - Irritable bowel syndrome [Unknown]
  - Defaecation urgency [Unknown]
  - Gastrointestinal sounds abnormal [Unknown]
  - Rectal discharge [Unknown]
  - Abdominal discomfort [Unknown]
  - Flatulence [Unknown]
  - Constipation [Unknown]
  - Anxiety [Unknown]
  - Hair growth abnormal [Unknown]
  - Adverse reaction [Unknown]
  - Inappropriate schedule of product administration [Unknown]
